FAERS Safety Report 7382023-6 (Version None)
Quarter: 2011Q1

REPORT INFORMATION
  Report Type: 
  Country: None (occurrence: None)
  Receive Date: 20110329
  Receipt Date: 20110324
  Transmission Date: 20110831
  Serious: Yes (Life-Threatening, Hospitalization, Other)
  Sender: FDA-Public Use
  Company Number: JP-PFIZER INC-2011049925

PATIENT
  Age: 82 Year
  Sex: Female

DRUGS (14)
  1. LYRICA [Suspect]
     Indication: DIABETIC NEUROPATHY
     Dosage: 75 MG/DAY
     Route: 048
     Dates: start: 20110201
  2. EPALRESTAT [Concomitant]
     Dosage: 150 MG DAILY
  3. LIPITOR [Concomitant]
     Dosage: 10 MG DAILY
  4. PRORNER [Concomitant]
     Dosage: 120 MMG DAILY
  5. EVAMYL [Concomitant]
     Dosage: 2 MG DAILY
  6. VOGLIBOSE [Concomitant]
     Dosage: 0.9 MG DAILY
  7. TAKEPRON [Concomitant]
     Dosage: 30 MG DAILY
  8. GOSHAJINKIGAN [Concomitant]
     Dosage: 7.5 MG, UNK
  9. CALBLOCK [Concomitant]
     Dosage: 8 MG DAILY
  10. MICARDIS [Concomitant]
     Dosage: 40 MG DAILY
  11. WARFARIN [Concomitant]
     Dosage: 2 MG DAILY
  12. CELECOXIB [Concomitant]
     Dosage: 200 MG DAILY
  13. LOXONIN [Concomitant]
     Dosage: 60 MG, AS NEEDED
  14. NOVORAPID [Concomitant]
     Indication: DIABETES MELLITUS
     Route: 058

REACTIONS (1)
  - INTERSTITIAL LUNG DISEASE [None]
